FAERS Safety Report 18878968 (Version 1)
Quarter: 2021Q1

REPORT INFORMATION
  Report Type: Spontaneous
  Country: PL (occurrence: PL)
  Receive Date: 20210211
  Receipt Date: 20210211
  Transmission Date: 20210420
  Serious: Yes (Life-Threatening)
  Sender: FDA-Public Use
  Company Number: NVSC2021PL031641

PATIENT
  Age: 96 Year
  Sex: Female
  Weight: 63 kg

DRUGS (1)
  1. CLINDAMYCIN. [Suspect]
     Active Substance: CLINDAMYCIN
     Indication: ERYSIPELAS
     Dosage: 600 MG, Q8H
     Route: 042
     Dates: start: 20170323, end: 20170329

REACTIONS (1)
  - Rash [Unknown]
